FAERS Safety Report 14362166 (Version 2)
Quarter: 2018Q1

REPORT INFORMATION
  Report Type: Report from Study
  Country: None (occurrence: CA)
  Receive Date: 20180108
  Receipt Date: 20180124
  Transmission Date: 20180509
  Serious: Yes (Hospitalization, Other)
  Sender: FDA-Public Use
  Company Number: CA-ABBVIE-18K-028-2210513-00

PATIENT
  Age: 60 Year
  Sex: Female

DRUGS (2)
  1. HUMIRA [Suspect]
     Active Substance: ADALIMUMAB
     Route: 058
     Dates: start: 2017
  2. HUMIRA [Suspect]
     Active Substance: ADALIMUMAB
     Indication: RHEUMATOID ARTHRITIS
     Route: 058
     Dates: start: 20161229, end: 201709

REACTIONS (9)
  - Cardiac failure [Unknown]
  - Eye haemorrhage [Unknown]
  - Injection site pain [Not Recovered/Not Resolved]
  - Nocturia [Unknown]
  - Pyrexia [Unknown]
  - Sputum discoloured [Unknown]
  - Pulmonary oedema [Unknown]
  - Pneumonia legionella [Recovered/Resolved]
  - Cough [Unknown]

NARRATIVE: CASE EVENT DATE: 2017
